FAERS Safety Report 9543203 (Version 2)
Quarter: 2013Q3

REPORT INFORMATION
  Report Type: Spontaneous
  Country: US (occurrence: US)
  Receive Date: 20130923
  Receipt Date: 20130923
  Transmission Date: 20140515
  Serious: Yes (Other)
  Sender: FDA-Public Use
  Company Number: US-NAPPMUNDI-USA-2012-0090114

PATIENT
  Sex: Male

DRUGS (2)
  1. DILAUDID TABLET [Suspect]
     Indication: DRUG ABUSE
  2. FENTANYL [Suspect]
     Indication: DRUG ABUSE

REACTIONS (2)
  - Drug abuse [Unknown]
  - Abnormal behaviour [Unknown]
